FAERS Safety Report 8318670-4 (Version None)
Quarter: 2012Q1

REPORT INFORMATION
  Report Type: 
  Country: None (occurrence: None)
  Receive Date: 20120315
  Receipt Date: 20110321
  Transmission Date: 20120608
  Serious: Yes (Other)
  Sender: FDA-Public Use
  Company Number: PHHY2011US18814

PATIENT
  Age: 38 Year
  Sex: Male
  Weight: 61.2 kg

DRUGS (2)
  1. GILENYA [Suspect]
     Indication: MULTIPLE SCLEROSIS RELAPSE
     Dosage: 0.5 MG, QD 0.5 MG, QD, ORAL
     Route: 048
     Dates: start: 20110318
  2. GILENYA [Suspect]
     Indication: MULTIPLE SCLEROSIS RELAPSE
     Dosage: 0.5 MG, QD 0.5 MG, QD, ORAL
     Route: 048
     Dates: start: 20110308

REACTIONS (2)
  - SINUS BRADYCARDIA [None]
  - HEART RATE DECREASED [None]
